FAERS Safety Report 7416067-2 (Version None)
Quarter: 2011Q2

REPORT INFORMATION
  Report Type: 
  Country: None (occurrence: None)
  Receive Date: 20110414
  Receipt Date: 20110407
  Transmission Date: 20111010
  Serious: Yes (Other)
  Sender: FDA-Public Use
  Company Number: CA-US-EMD SERONO, INC.-230184K09CAN

PATIENT
  Sex: Male

DRUGS (13)
  1. REBIF [Suspect]
     Indication: RELAPSING-REMITTING MULTIPLE SCLEROSIS
     Route: 058
     Dates: start: 20090313, end: 20090101
  2. ASPIRIN [Concomitant]
  3. LORAZEPAM [Concomitant]
  4. NOSONEX [Concomitant]
  5. NEXIUM [Concomitant]
  6. REBIF [Suspect]
     Route: 058
     Dates: start: 20090101, end: 20090424
  7. REBIF [Suspect]
     Route: 058
     Dates: start: 20090427, end: 20090517
  8. NORVASC [Concomitant]
     Indication: HYPERTENSION
  9. GABAPENTIN [Concomitant]
  10. ACETAMINOPHEN [Concomitant]
  11. REBIF [Suspect]
     Route: 058
     Dates: start: 20090519, end: 20090708
  12. ADVIL LIQUI-GELS [Concomitant]
  13. REBIF [Suspect]
     Route: 058
     Dates: start: 20090101, end: 20090101

REACTIONS (14)
  - PYREXIA [None]
  - CYSTITIS [None]
  - BLOOD PRESSURE DECREASED [None]
  - BACK PAIN [None]
  - INJECTION SITE PAIN [None]
  - DIZZINESS [None]
  - INJECTION SITE HAEMATOMA [None]
  - PANCYTOPENIA [None]
  - PENILE PAIN [None]
  - ALOPECIA [None]
  - CHILLS [None]
  - MYALGIA [None]
  - INCORRECT DOSE ADMINISTERED [None]
  - INJECTION SITE ERYTHEMA [None]
